FAERS Safety Report 5774445-1 (Version None)
Quarter: 2008Q2

REPORT INFORMATION
  Report Type: 
  Country: None (occurrence: None)
  Receive Date: 20080616
  Receipt Date: 20080604
  Transmission Date: 20081010
  Serious: Yes (Other)
  Sender: FDA-Public Use
  Company Number: US-PFIZER INC-2008047641

PATIENT
  Age: 40 Year
  Sex: Female

DRUGS (1)
  1. FLAGYL [Suspect]
     Indication: GIARDIASIS
     Route: 048
     Dates: start: 19971001, end: 19971010

REACTIONS (5)
  - DEPRESSION [None]
  - FATIGUE [None]
  - PARAESTHESIA [None]
  - STOMACH DISCOMFORT [None]
  - TREMOR [None]
